FAERS Safety Report 5408943-7 (Version None)
Quarter: 2007Q3

REPORT INFORMATION
  Report Type: 
  Country: None (occurrence: None)
  Receive Date: 20070713
  Receipt Date: 20070206
  Transmission Date: 20080115
  Serious: Yes (Hospitalization)
  Sender: FDA-Public Use
  Company Number: US-JNJFOC-20060705322

PATIENT
  Age: 37 Year
  Sex: Female
  Weight: 72.5755 kg

DRUGS (5)
  1. ORTHO EVRA [Suspect]
     Indication: CONTRACEPTION
     Dosage: TRANSDERMAL
     Route: 062
     Dates: start: 20050223, end: 20050422
  2. DURAGESIC-100 [Concomitant]
  3. CYMBALTA [Concomitant]
  4. BACLOFEN [Concomitant]
  5. TRANZODONE             (TRAZODONE) [Concomitant]

REACTIONS (3)
  - DEEP VEIN THROMBOSIS [None]
  - NECK PAIN [None]
  - PAIN IN EXTREMITY [None]
